FAERS Safety Report 6812610-2 (Version None)
Quarter: 2010Q3

REPORT INFORMATION
  Report Type: 
  Country: None (occurrence: None)
  Receive Date: 20100701
  Receipt Date: 20100621
  Transmission Date: 20110219
  Serious: Yes (Hospitalization, Other)
  Sender: FDA-Public Use
  Company Number: JP-PFIZER INC-2010057337

PATIENT
  Age: 62 Year
  Sex: Female
  Weight: 50.9 kg

DRUGS (13)
  1. CABASER [Suspect]
     Indication: PARKINSON'S DISEASE
     Dosage: 2 MG, 1X/DAY
     Route: 048
     Dates: start: 20100305
  2. CABASER [Suspect]
     Dosage: 4 MG, 1X/DAY
     Route: 048
     Dates: end: 20100421
  3. AZULFIDINE [Suspect]
     Dosage: UNK
  4. AMLODIPINE BESILATE [Concomitant]
     Indication: HYPERTENSION
     Dosage: 5 MG, 1X/DAY
     Route: 048
     Dates: start: 20051221
  5. HUMALOG [Concomitant]
     Indication: TYPE 1 DIABETES MELLITUS
     Dosage: UNK
     Route: 058
     Dates: start: 20070523
  6. LANTUS [Concomitant]
     Indication: TYPE 1 DIABETES MELLITUS
     Dosage: UNK
     Route: 058
     Dates: start: 20080723
  7. MICARDIS [Concomitant]
     Indication: HYPERTENSION
     Dosage: 80 MG, 1X/DAY
     Route: 048
     Dates: start: 20070131
  8. CARBIDOPA AND LEVODOPA [Concomitant]
     Indication: PARKINSON'S DISEASE
     Dosage: 5 TIMES DAILY
     Route: 048
  9. CARTEOLOL HYDROCHLORIDE [Concomitant]
     Indication: GLAUCOMA
     Dosage: UNK
     Route: 031
  10. AZOPT [Concomitant]
     Indication: GLAUCOMA
     Dosage: UNK
     Route: 031
  11. DETANTOL [Concomitant]
     Indication: GLAUCOMA
     Dosage: UNK
     Route: 031
  12. TRAVOPROST [Concomitant]
     Indication: GLAUCOMA
     Dosage: UNK
     Route: 031
  13. FLUMETHOLON [Concomitant]
     Indication: GLAUCOMA
     Dosage: UNK
     Route: 031

REACTIONS (3)
  - BLOOD ALBUMIN DECREASED [None]
  - OEDEMA PERIPHERAL [None]
  - PARKINSON'S DISEASE [None]
